FAERS Safety Report 5039353-2 (Version None)
Quarter: 2006Q2

REPORT INFORMATION
  Report Type: 
  Country: None (occurrence: None)
  Receive Date: 20060623
  Receipt Date: 20060612
  Transmission Date: 20061013
  Serious: Yes (Other)
  Sender: FDA-Public Use
  Company Number: 2006074667

PATIENT
  Sex: Female

DRUGS (5)
  1. LIPITOR [Suspect]
  2. ZOLOFT [Suspect]
  3. CELEBREX [Suspect]
  4. VALIUM [Concomitant]
  5. OXYCODONE (OXYCODONE) [Concomitant]

REACTIONS (4)
  - ARTHROPATHY [None]
  - BUTTOCK PAIN [None]
  - INFLAMMATION [None]
  - SPINAL DISORDER [None]
